FAERS Safety Report 4276477-1 (Version None)
Quarter: 2004Q1

REPORT INFORMATION
  Report Type: 
  Country: None (occurrence: None)
  Receive Date: 20040120
  Receipt Date: 20040108
  Transmission Date: 20041129
  Serious: Yes (Hospitalization, Other)
  Sender: FDA-Public Use
  Company Number: 2003113139

PATIENT
  Age: 80 Year
  Sex: Male
  Weight: 81.6475 kg

DRUGS (13)
  1. TIKOSYN [Suspect]
     Indication: ATRIAL FIBRILLATION
     Dosage: 1000 MCG (BID), ORAL
     Route: 048
     Dates: start: 20030601
  2. TIKOSYN [Suspect]
     Indication: HEART RATE IRREGULAR
     Dosage: 1000 MCG (BID), ORAL
     Route: 048
     Dates: start: 20030601
  3. CELEBREX [Suspect]
     Indication: ARTHRITIS
     Dosage: 200 MG (DAILY), ORAL
     Route: 048
  4. LIBRAX [Concomitant]
  5. ACETYLSALICYLIC ACID SRT [Concomitant]
  6. ATORVASTATIN (ATORVASTATIN) [Concomitant]
  7. HYDROXYZINE EMBONATE (HYDROXYZINE EMBONATE) [Concomitant]
  8. LANSOPRAZOLE [Concomitant]
  9. AMLODIPINE BESYLATE [Concomitant]
  10. HYOSCYAMINE (HYOSCYAMINE) [Concomitant]
  11. TOCOPHEROL CONCENTRATE CAP [Concomitant]
  12. ASCORBIC ACID [Concomitant]
  13. GARLIC (GARLIC) [Concomitant]

REACTIONS (10)
  - ATRIAL FIBRILLATION [None]
  - CHOLELITHIASIS [None]
  - FATIGUE [None]
  - FEELING ABNORMAL [None]
  - GALLBLADDER DISORDER [None]
  - HEART RATE IRREGULAR [None]
  - NAUSEA [None]
  - PAIN [None]
  - SALIVARY HYPERSECRETION [None]
  - SWELLING [None]
